FAERS Safety Report 23490662 (Version 1)
Quarter: 2024Q1

REPORT INFORMATION
  Report Type: Spontaneous
  Country: US (occurrence: US)
  Receive Date: 20240206
  Receipt Date: 20240206
  Transmission Date: 20240409
  Serious: No
  Sender: FDA-Public Use
  Company Number: US-TEVA-VS-3152050

PATIENT
  Age: 74 Year
  Sex: Male

DRUGS (1)
  1. AUSTEDO [Suspect]
     Active Substance: DEUTETRABENAZINE
     Indication: Tardive dyskinesia
     Dosage: 24MG IN THE MORNING AND 24MG IN THE EVENING
     Route: 065
     Dates: start: 2023

REACTIONS (1)
  - Drug ineffective [Unknown]
